FAERS Safety Report 9285641 (Version 1)
Quarter: 2013Q2

REPORT INFORMATION
  Report Type: Spontaneous
  Country: US (occurrence: None)
  Receive Date: 20130510
  Receipt Date: 20130510
  Transmission Date: 20140414
  Serious: Yes (Other)
  Sender: FDA-Public Use
  Company Number: None

PATIENT
  Age: 4 Year
  Sex: Male
  Weight: 21.32 kg

DRUGS (1)
  1. SINGULAIR [Suspect]
     Indication: ABDOMINAL PAIN

REACTIONS (1)
  - Abdominal pain [None]
